FAERS Safety Report 9139045 (Version 1)
Quarter: 2013Q1

REPORT INFORMATION
  Report Type: Spontaneous
  Country: US (occurrence: US)
  Receive Date: 20130305
  Receipt Date: 20130305
  Transmission Date: 20140127
  Serious: No
  Sender: FDA-Public Use
  Company Number: US-BAYER-2013-021717

PATIENT
  Age: 52 Year
  Sex: Female

DRUGS (3)
  1. CLIMARA PRO [Suspect]
     Indication: OSTEOPOROSIS POSTMENOPAUSAL
     Dosage: UNK
     Route: 062
     Dates: start: 201301
  2. UNKNOWN DRUG [Concomitant]
     Indication: DEPRESSION
  3. UNKNOWN DRUG [Concomitant]
     Indication: ANXIETY

REACTIONS (1)
  - Drug ineffective [Not Recovered/Not Resolved]
